FAERS Safety Report 6958375-5 (Version None)
Quarter: 2010Q3

REPORT INFORMATION
  Report Type: 
  Country: None (occurrence: None)
  Receive Date: 20100831
  Receipt Date: 20100824
  Transmission Date: 20110219
  Serious: Yes (Other)
  Sender: FDA-Public Use
  Company Number: CH-JNJFOC-20100500180

PATIENT
  Sex: Female

DRUGS (11)
  1. REMICADE [Suspect]
     Indication: PSORIATIC ARTHROPATHY
     Route: 042
     Dates: start: 20080222, end: 20081212
  2. ENBREL [Suspect]
     Indication: PSORIATIC ARTHROPATHY
  3. HUMIRA [Suspect]
     Indication: PSORIATIC ARTHROPATHY
  4. METHOTREXATE [Concomitant]
     Indication: PSORIATIC ARTHROPATHY
  5. PREDNISONE [Concomitant]
     Indication: PSORIATIC ARTHROPATHY
  6. PANTOPRAZOLE SODIUM [Concomitant]
     Indication: ABDOMINAL PAIN UPPER
  7. BISOPROLOL FUMARATE [Concomitant]
  8. HYDROCHLOROTHIAZIDE [Concomitant]
  9. CALCIUM + D3 [Concomitant]
     Indication: OSTEOPOROSIS
  10. BONIVA [Concomitant]
     Indication: OSTEOPOROSIS
  11. CORTICOSTEROIDS [Concomitant]
     Indication: PSORIATIC ARTHROPATHY

REACTIONS (4)
  - DEMYELINATION [None]
  - HYPERSENSITIVITY [None]
  - MUSCULAR WEAKNESS [None]
  - SYSTEMIC LUPUS ERYTHEMATOSUS [None]
